FAERS Safety Report 15951036 (Version 1)
Quarter: 2019Q1

REPORT INFORMATION
  Report Type: Spontaneous
  Country: US (occurrence: US)
  Receive Date: 20190212
  Receipt Date: 20190212
  Transmission Date: 20190417
  Serious: Yes (Life-Threatening, Other)
  Sender: FDA-Public Use
  Company Number: US-C B FLEET CO INC-201902-US-000339

PATIENT
  Age: 15 Year
  Sex: Female

DRUGS (4)
  1. MONISTAT 7 COMBINATION PACK TRIPLE ACTION [Suspect]
     Active Substance: MICONAZOLE NITRATE
     Indication: VULVOVAGINAL RASH
     Dosage: USED APPLICATOR VAGINALLY ONCE, USED EXTERNAL CREAM A COUPLE OF DAYS AGO
     Route: 067
     Dates: end: 20190129
  2. EPIPEN [Concomitant]
     Active Substance: EPINEPHRINE
  3. PROZAC [Concomitant]
     Active Substance: FLUOXETINE HYDROCHLORIDE
  4. BUSPAR [Concomitant]
     Active Substance: BUSPIRONE HYDROCHLORIDE

REACTIONS (3)
  - Seizure [Recovered/Resolved]
  - Loss of consciousness [Recovered/Resolved]
  - Product use in unapproved indication [None]

NARRATIVE: CASE EVENT DATE: 20190129
